FAERS Safety Report 25645109 (Version 2)
Quarter: 2025Q3

REPORT INFORMATION
  Report Type: Spontaneous
  Country: US (occurrence: US)
  Receive Date: 20250805
  Receipt Date: 20250814
  Transmission Date: 20251020
  Serious: No
  Sender: BIOMARIN
  Company Number: US-SA-2025SA223778

PATIENT
  Age: 2 Year
  Sex: Male

DRUGS (1)
  1. LARONIDASE [Suspect]
     Active Substance: LARONIDASE
     Indication: Mucopolysaccharidosis I
     Dosage: 9.6 TOTAL DOSE ADMINISTERED UNITS NOT SPECIFIED (QW)
     Dates: start: 202502

REACTIONS (1)
  - Musculoskeletal stiffness [Not Recovered/Not Resolved]

NARRATIVE: CASE EVENT DATE: 20250701
